FAERS Safety Report 4532991-2 (Version None)
Quarter: 2004Q4

REPORT INFORMATION
  Report Type: 
  Country: None (occurrence: None)
  Receive Date: 20041220
  Receipt Date: 20041220
  Transmission Date: 20050328
  Serious: Yes (Other)
  Sender: FDA-Public Use
  Company Number: None

PATIENT
  Sex: Female
  Weight: 50.8029 kg

DRUGS (2)
  1. EFFEXOR XR [Suspect]
     Indication: DEPRESSION
     Dosage: 75MG  1X DAILY ORAL
     Route: 048
     Dates: start: 20040915, end: 20041029
  2. EFFEXOR XR [Suspect]
     Indication: STRESS SYMPTOMS
     Dosage: 75MG  1X DAILY ORAL
     Route: 048
     Dates: start: 20040915, end: 20041029

REACTIONS (7)
  - ABNORMAL BEHAVIOUR [None]
  - CRYING [None]
  - DRUG WITHDRAWAL SYNDROME [None]
  - PANIC ATTACK [None]
  - POLLAKIURIA [None]
  - SLEEP WALKING [None]
  - THIRST [None]
